FAERS Safety Report 24157241 (Version 1)
Quarter: 2024Q3

REPORT INFORMATION
  Report Type: Report from Study
  Country: CA (occurrence: CA)
  Receive Date: 20240731
  Receipt Date: 20240731
  Transmission Date: 20241017
  Serious: Yes (Hospitalization)
  Sender: BIOCON
  Company Number: CA-BIOCON BIOLOGICS LIMITED-BBL2024005472

PATIENT

DRUGS (1)
  1. HULIO [Suspect]
     Active Substance: ADALIMUMAB-FKJP
     Indication: Rheumatoid arthritis
     Dosage: 40 MILLIGRAM, BIWEEKLY, SOLUTION
     Route: 058

REACTIONS (11)
  - Dysuria [Unknown]
  - Swelling face [Unknown]
  - Asthenia [Unknown]
  - Night sweats [Unknown]
  - Pain [Unknown]
  - Weight increased [Unknown]
  - Hypoaesthesia [Unknown]
  - Dyspnoea [Unknown]
  - Vomiting [Unknown]
  - Cystitis [Unknown]
  - Peripheral swelling [Unknown]
